FAERS Safety Report 14424232 (Version 1)
Quarter: 2018Q1

REPORT INFORMATION
  Report Type: Report from Study
  Country: CA (occurrence: CA)
  Receive Date: 20180123
  Receipt Date: 20180123
  Transmission Date: 20180509
  Serious: Yes (Other)
  Sender: FDA-Public Use
  Company Number: CA-AMGEN-CANSL2018006770

PATIENT
  Age: 67 Year
  Sex: Female

DRUGS (1)
  1. PROLIA [Suspect]
     Active Substance: DENOSUMAB
     Indication: PRODUCT USED FOR UNKNOWN INDICATION
     Dosage: 60 MG/ML, UNK
     Route: 065
     Dates: start: 20170711

REACTIONS (5)
  - Angina pectoris [Unknown]
  - Malaise [Unknown]
  - Bone pain [Unknown]
  - Myalgia [Unknown]
  - Arrhythmia [Unknown]

NARRATIVE: CASE EVENT DATE: 2017
